FAERS Safety Report 23381208 (Version 4)
Quarter: 2024Q1

REPORT INFORMATION
  Report Type: Report from Study
  Country: US (occurrence: US)
  Receive Date: 20240109
  Receipt Date: 20240206
  Transmission Date: 20240409
  Serious: Yes (Hospitalization, Other)
  Sender: FDA-Public Use
  Company Number: US-GILEAD-2024-0657440

PATIENT
  Age: 85 Year
  Sex: Female

DRUGS (3)
  1. AMBRISENTAN [Suspect]
     Active Substance: AMBRISENTAN
     Indication: Pulmonary arterial hypertension
     Dosage: 10 MG, QD
     Route: 065
     Dates: start: 20190716
  2. OPSUMIT [Concomitant]
     Active Substance: MACITENTAN
  3. ELIQUIS [Concomitant]
     Active Substance: APIXABAN

REACTIONS (6)
  - Pneumonia [Unknown]
  - Malaise [Unknown]
  - Coronary arterial stent insertion [Unknown]
  - Catheterisation cardiac [Unknown]
  - Fatigue [Unknown]
  - Cardiac disorder [Unknown]

NARRATIVE: CASE EVENT DATE: 20240102
